FAERS Safety Report 25741269 (Version 1)
Quarter: 2025Q3

REPORT INFORMATION
  Report Type: Spontaneous
  Country: CN (occurrence: CN)
  Receive Date: 20250829
  Receipt Date: 20250829
  Transmission Date: 20251021
  Serious: Yes (Other)
  Sender: NOVO NORDISK
  Company Number: None

PATIENT
  Age: 75 Year
  Sex: Female
  Weight: 60 kg

DRUGS (1)
  1. INSULIN ASPART\INSULIN DEGLUDEC [Suspect]
     Active Substance: INSULIN ASPART\INSULIN DEGLUDEC
     Indication: Type 2 diabetes mellitus
     Route: 058
     Dates: start: 20250805, end: 20250805

REACTIONS (3)
  - Tachycardia [Recovering/Resolving]
  - Rash [Recovering/Resolving]
  - Pruritus [Recovering/Resolving]

NARRATIVE: CASE EVENT DATE: 20250805
